FAERS Safety Report 7267404-3 (Version None)
Quarter: 2011Q1

REPORT INFORMATION
  Report Type: 
  Country: None (occurrence: None)
  Receive Date: 20110201
  Receipt Date: 20101101
  Transmission Date: 20110831
  Serious: No
  Sender: FDA-Public Use
  Company Number: A0889967A

PATIENT
  Age: 38 Year
  Sex: Male

DRUGS (2)
  1. ARIXTRA [Suspect]
     Dosage: 2.5MG PER DAY
     Route: 058
     Dates: start: 20101017
  2. MULTIPLE MEDICATIONS [Concomitant]

REACTIONS (2)
  - INJECTION SITE PAIN [None]
  - SCREAMING [None]
